FAERS Safety Report 5494630-6 (Version None)
Quarter: 2007Q4

REPORT INFORMATION
  Report Type: 
  Country: None (occurrence: None)
  Receive Date: 20071024
  Receipt Date: 20071015
  Transmission Date: 20080405
  Serious: Yes (Other)
  Sender: FDA-Public Use
  Company Number: JP-ASTRAZENECA-2007AP06512

PATIENT
  Age: 44 Year
  Sex: Female

DRUGS (2)
  1. XYLOCAINE [Suspect]
     Indication: EPIDURAL ANAESTHESIA
     Route: 008
     Dates: start: 20040101, end: 20040101
  2. SEVOFLURANE [Concomitant]
     Indication: GENERAL ANAESTHESIA
     Route: 055
     Dates: start: 20040101, end: 20040101

REACTIONS (2)
  - ANAESTHETIC COMPLICATION [None]
  - DEPRESSED LEVEL OF CONSCIOUSNESS [None]
